FAERS Safety Report 4822510-5 (Version None)
Quarter: 2005Q4

REPORT INFORMATION
  Report Type: 
  Country: None (occurrence: None)
  Receive Date: 20051108
  Receipt Date: 20051027
  Transmission Date: 20060501
  Serious: Yes (Hospitalization)
  Sender: FDA-Public Use
  Company Number: US-JNJFOC-20051005867

PATIENT
  Sex: Female
  Weight: 71.67 kg

DRUGS (12)
  1. INFLIXIMAB [Suspect]
     Route: 042
  2. INFLIXIMAB [Suspect]
     Indication: RHEUMATOID ARTHRITIS
     Route: 042
  3. LORATADINE [Concomitant]
  4. WARFARIN [Concomitant]
  5. ASPIRIN [Concomitant]
  6. CLOPIDOGREL BISULFATE [Concomitant]
  7. OMEPRAZOLE [Concomitant]
  8. SIMVASTATIN [Concomitant]
  9. PREDNISONE [Concomitant]
  10. SERTRALINE HCL [Concomitant]
  11. METOPROLOL [Concomitant]
  12. SYNTHROID [Concomitant]

REACTIONS (2)
  - BACK PAIN [None]
  - VOMITING [None]
